FAERS Safety Report 11071083 (Version 2)
Quarter: 2015Q2

REPORT INFORMATION
  Report Type: Spontaneous
  Country: FR (occurrence: FR)
  Receive Date: 20150428
  Receipt Date: 20150526
  Transmission Date: 20150821
  Serious: Yes (Hospitalization)
  Sender: FDA-Public Use
  Company Number: FR-ACCORD-030324

PATIENT
  Age: 49 Year
  Sex: Male

DRUGS (11)
  1. XATRAL [Concomitant]
     Active Substance: ALFUZOSIN
  2. IMOVANE [Concomitant]
     Active Substance: ZOPICLONE
  3. KEPPRA [Concomitant]
     Active Substance: LEVETIRACETAM
  4. TAHOR [Concomitant]
     Active Substance: ATORVASTATIN CALCIUM
  5. ATACAND [Concomitant]
     Active Substance: CANDESARTAN CILEXETIL
  6. DOCETAXEL ACCORD [Suspect]
     Active Substance: DOCETAXEL
     Indication: BRONCHIAL CARCINOMA
     Dosage: EXP DATE : JUN-2016?STRENGTH: 160 MG/8ML
     Route: 042
     Dates: start: 20150318
  7. LAMICTAL [Concomitant]
     Active Substance: LAMOTRIGINE
  8. PANTOPRAZOLE [Concomitant]
     Active Substance: PANTOPRAZOLE SODIUM
  9. MEDROL [Concomitant]
     Active Substance: METHYLPREDNISOLONE
  10. LOVENOX [Concomitant]
     Active Substance: ENOXAPARIN SODIUM
  11. CATAPRESSAN [Concomitant]
     Active Substance: CLONIDINE

REACTIONS (3)
  - Cardiac failure [Unknown]
  - Enterocolitis haemorrhagic [Recovered/Resolved]
  - Neutropenia [Unknown]

NARRATIVE: CASE EVENT DATE: 20150322
